FAERS Safety Report 25019927 (Version 7)
Quarter: 2025Q2

REPORT INFORMATION
  Report Type: Spontaneous
  Country: CA (occurrence: CA)
  Receive Date: 20250227
  Receipt Date: 20250422
  Transmission Date: 20250717
  Serious: Yes (Other)
  Sender: BIOMARIN
  Company Number: CA-BIOMARINAP-CA-2025-164150

PATIENT

DRUGS (2)
  1. PALYNZIQ [Suspect]
     Active Substance: PEGVALIASE-PQPZ
     Indication: Phenylketonuria
     Dosage: 2.5 MILLIGRAM, QW
     Route: 058
     Dates: start: 20250205
  2. PALYNZIQ [Suspect]
     Active Substance: PEGVALIASE-PQPZ
     Route: 058

REACTIONS (14)
  - Cellulitis [Unknown]
  - Chills [Unknown]
  - Peripheral swelling [Unknown]
  - Injection site pain [Recovered/Resolved]
  - Injection site swelling [Unknown]
  - Injection site inflammation [Unknown]
  - Injection site warmth [Recovered/Resolved]
  - Fatigue [Unknown]
  - Headache [Unknown]
  - Injection site erythema [Recovering/Resolving]
  - Injection site pruritus [Recovered/Resolved]
  - Arthralgia [Recovered/Resolved]
  - Pain in extremity [Unknown]
  - Erythema [Unknown]

NARRATIVE: CASE EVENT DATE: 20250201
